FAERS Safety Report 4751687-5 (Version None)
Quarter: 2005Q3

REPORT INFORMATION
  Report Type: 
  Country: None (occurrence: None)
  Receive Date: 20050824
  Receipt Date: 20050815
  Transmission Date: 20060218
  Serious: Yes (Hospitalization)
  Sender: FDA-Public Use
  Company Number: 200512596EU

PATIENT
  Age: 82 Year
  Sex: Male

DRUGS (15)
  1. RAMIPRIL [Suspect]
     Indication: HYPERTENSION
     Route: 048
     Dates: end: 20050721
  2. GLIMEPIRIDE [Suspect]
     Indication: DIABETES MELLITUS NON-INSULIN-DEPENDENT
     Route: 048
     Dates: start: 20041223
  3. MELOXICAM [Suspect]
     Indication: ANALGESIC EFFECT
     Route: 048
     Dates: start: 20050210, end: 20050720
  4. CO-DYDRAMOL [Concomitant]
     Indication: OSTEOARTHRITIS
     Route: 048
  5. THEOPHYLLINE [Concomitant]
     Indication: CHRONIC OBSTRUCTIVE PULMONARY DISEASE
     Route: 048
  6. GABAPENTIN [Concomitant]
     Indication: NEUROPATHIC PAIN
     Route: 048
  7. CALCICHEW D3 [Concomitant]
     Indication: VITAMIN D DEFICIENCY
     Route: 048
  8. ATROVENT [Concomitant]
     Indication: CHRONIC OBSTRUCTIVE PULMONARY DISEASE
     Route: 055
  9. SERETIDE [Concomitant]
     Indication: CHRONIC OBSTRUCTIVE PULMONARY DISEASE
     Route: 055
  10. VENTOLIN [Concomitant]
     Indication: CHRONIC OBSTRUCTIVE PULMONARY DISEASE
     Route: 055
  11. RABEPRAZOLE SODIUM [Concomitant]
     Indication: PROPHYLAXIS
     Route: 048
     Dates: start: 20050210, end: 20050306
  12. RABEPRAZOLE SODIUM [Concomitant]
     Indication: STOMACH DISCOMFORT
     Route: 048
     Dates: start: 20050210, end: 20050306
  13. ASPIRIN [Concomitant]
     Indication: PROPHYLAXIS
     Route: 048
     Dates: start: 20050510
  14. DOXAZOSIN [Concomitant]
     Indication: PROSTATISM
     Route: 048
     Dates: start: 20050510
  15. SIMVASTATIN [Concomitant]
     Indication: HYPERCHOLESTEROLAEMIA
     Route: 048

REACTIONS (3)
  - BLOOD CREATININE INCREASED [None]
  - BLOOD POTASSIUM INCREASED [None]
  - BLOOD TEST ABNORMAL [None]
